FAERS Safety Report 23325018 (Version 1)
Quarter: 2023Q4

REPORT INFORMATION
  Report Type: Spontaneous
  Country: GB (occurrence: GB)
  Receive Date: 20231221
  Receipt Date: 20231221
  Transmission Date: 20240109
  Serious: Yes (Other)
  Sender: FDA-Public Use
  Company Number: GB-ENDO PHARMACEUTICALS INC-2023-006155

PATIENT
  Age: 25 Year
  Sex: Male

DRUGS (2)
  1. AVEED [Suspect]
     Active Substance: TESTOSTERONE UNDECANOATE
     Indication: Transgender hormonal therapy
     Dosage: UNK UNKNOWN, UNKNOWN
     Route: 051
  2. TESTOSTERONE [Suspect]
     Active Substance: TESTOSTERONE
     Indication: Transgender hormonal therapy
     Dosage: UNK UNKNOWN, UNKNOWN
     Route: 061

REACTIONS (2)
  - Idiopathic intracranial hypertension [Recovered/Resolved]
  - Off label use [Not Recovered/Not Resolved]
